FAERS Safety Report 18347318 (Version 10)
Quarter: 2021Q1

REPORT INFORMATION
  Report Type: Report from Study
  Country: TR (occurrence: TR)
  Receive Date: 20201005
  Receipt Date: 20210204
  Transmission Date: 20210419
  Serious: Yes (Death, Hospitalization)
  Sender: FDA-Public Use
  Company Number: TR-ROCHE-2687549

PATIENT
  Age: 61 Year
  Sex: Female
  Weight: 86 kg

DRUGS (7)
  1. RO6874281 (FAP IL2V MAB) [Suspect]
     Active Substance: SIMLUKAFUSP ALFA
     Indication: METASTATIC NEOPLASM
     Dosage: DATE OF LAST DOSE PRIOR TO SAE/AE 10 MG (TOTAL VOLUME 4.8 ML): 16/SEP/2020 (STARTED AT 04:00 PM AND
     Route: 042
     Dates: start: 20200805
  2. FUCICORT [Concomitant]
     Active Substance: BETAMETHASONE VALERATE\FUSIDIC ACID
     Indication: OEDEMA PERIPHERAL
     Dates: start: 20201118
  3. LOMOTIL (TURKEY) [Concomitant]
     Indication: DIARRHOEA
     Dates: start: 20201130, end: 20201201
  4. ATEZOLIZUMAB. [Suspect]
     Active Substance: ATEZOLIZUMAB
     Indication: METASTATIC NEOPLASM
     Dosage: MOST RECENT DOSE OF ATEZOLIZUMAB PRIOR TO SAE 1200 MG: 16/SEP/2020 (STARTED AT 02.30 AND ENDED AT 03
     Route: 041
     Dates: start: 20200805
  5. SUPRAX [Concomitant]
     Active Substance: CEFIXIME
     Indication: URINARY TRACT INFECTION
     Dates: start: 20200826, end: 20200901
  6. ALBUMIN [Concomitant]
     Active Substance: ALBUMIN HUMAN
     Indication: HYPOALBUMINAEMIA
     Dates: start: 20201119
  7. LOMOTIL (TURKEY) [Concomitant]
     Dates: start: 20201203, end: 20201204

REACTIONS (2)
  - Pleural effusion [Recovered/Resolved]
  - COVID-19 [Fatal]

NARRATIVE: CASE EVENT DATE: 20200928
